FAERS Safety Report 9564103 (Version 4)
Quarter: 2014Q2

REPORT INFORMATION
  Report Type: Spontaneous
  Country: JP (occurrence: JP)
  Receive Date: 20130929
  Receipt Date: 20140415
  Transmission Date: 20141212
  Serious: Yes (Hospitalization)
  Sender: FDA-Public Use
  Company Number: JP-OTSUKA-JP-2013-14052

PATIENT
  Age: 65 Year
  Sex: Male

DRUGS (11)
  1. SAMSCA [Suspect]
     Indication: CONGESTIVE CARDIOMYOPATHY
     Dosage: 3.75 MG MILLIGRAM(S), QD
     Route: 048
     Dates: start: 20130806, end: 20130815
  2. DOBUTAMINE [Suspect]
     Indication: PRODUCT USED FOR UNKNOWN INDICATION
     Dosage: UNK
     Route: 042
     Dates: start: 20130720, end: 20130811
  3. DOBUTAMINE [Suspect]
     Dosage: UNK
     Route: 042
  4. ALDACTONE A [Concomitant]
     Route: 048
  5. LUPRAC [Concomitant]
     Route: 048
  6. ARTIST [Concomitant]
     Route: 048
  7. HALFDIGOXIN [Concomitant]
     Route: 048
  8. THYRADIN [Concomitant]
     Route: 048
  9. LIVALO [Concomitant]
     Route: 048
  10. RENIVACE [Concomitant]
     Route: 048
  11. WARFARIN K [Concomitant]
     Route: 048

REACTIONS (2)
  - Eosinophil count increased [Recovered/Resolved]
  - Hepatic function abnormal [Recovered/Resolved]
